FAERS Safety Report 21385565 (Version 1)
Quarter: 2022Q3

REPORT INFORMATION
  Report Type: Spontaneous
  Country: US (occurrence: US)
  Receive Date: 20220928
  Receipt Date: 20220928
  Transmission Date: 20221026
  Serious: Yes (Other)
  Sender: FDA-Public Use
  Company Number: US-drreddys-SPO/USA/22/0154793

PATIENT
  Age: 16 Year
  Sex: Male

DRUGS (1)
  1. ACCUTANE [Suspect]
     Active Substance: ISOTRETINOIN
     Indication: Product used for unknown indication
     Dosage: RMA ISSUE DATE: 14 FEBRUARY 2022 10:59:15 AM, 24 MARCH 2022 03:18:09 PM, 26 APRIL 2022 11:18:08 AM,

REACTIONS (2)
  - Affective disorder [Unknown]
  - Adverse drug reaction [Unknown]
